FAERS Safety Report 13919537 (Version 1)
Quarter: 2017Q3

REPORT INFORMATION
  Report Type: Spontaneous
  Country: US (occurrence: None)
  Receive Date: 20170829
  Receipt Date: 20170829
  Transmission Date: 20171127
  Serious: Yes (Hospitalization, Disabling, Other)
  Sender: FDA-Public Use
  Company Number: None

PATIENT
  Age: 57 Year
  Sex: Male
  Weight: 101.6 kg

DRUGS (2)
  1. MEDTRONIC PUMP [Concomitant]
     Active Substance: DEVICE
  2. MAGNEVIST [Suspect]
     Active Substance: GADOPENTETATE DIMEGLUMINE
     Indication: NUCLEAR MAGNETIC RESONANCE IMAGING
     Dosage: INJECTED INTO SPINAL AREA
     Dates: start: 20161118, end: 20161118

REACTIONS (6)
  - Meningitis chemical [None]
  - Visual impairment [None]
  - Depressed level of consciousness [None]
  - Influenza like illness [None]
  - Craniocerebral injury [None]
  - Tinnitus [None]
